FAERS Safety Report 7098087-3 (Version None)
Quarter: 2010Q4

REPORT INFORMATION
  Report Type: 
  Country: None (occurrence: None)
  Receive Date: 20101104
  Receipt Date: 20101027
  Transmission Date: 20110411
  Serious: Yes (Hospitalization)
  Sender: FDA-Public Use
  Company Number: 2010JP006252

PATIENT
  Age: 68 Year
  Sex: Male
  Weight: 49 kg

DRUGS (6)
  1. FUNGUARD (MICAFUNGIN) INJECTION [Suspect]
     Indication: FUNGAEMIA
     Dosage: 100 MG, UID/QD, IV DRIP ; 300 MG, UID/QD, IV DRIP ; 150 MG UID/QD, IV DRIP
     Route: 041
     Dates: start: 20100914, end: 20100915
  2. FUNGUARD (MICAFUNGIN) INJECTION [Suspect]
     Indication: FUNGAEMIA
     Dosage: 100 MG, UID/QD, IV DRIP ; 300 MG, UID/QD, IV DRIP ; 150 MG UID/QD, IV DRIP
     Route: 041
     Dates: start: 20100916, end: 20101021
  3. FUNGUARD (MICAFUNGIN) INJECTION [Suspect]
     Indication: FUNGAEMIA
     Dosage: 100 MG, UID/QD, IV DRIP ; 300 MG, UID/QD, IV DRIP ; 150 MG UID/QD, IV DRIP
     Route: 041
     Dates: start: 20101022
  4. BFLUID (AMINO ACID/CARBOHYDRATE/ELECTROLYTE/VITAMINE COMBAINE) [Concomitant]
  5. C-PARA (VITAMINS NOS) [Concomitant]
  6. FAMOTIDINE [Concomitant]

REACTIONS (4)
  - CONDITION AGGRAVATED [None]
  - DECREASED APPETITE [None]
  - DYSGEUSIA [None]
  - EYE INFECTION FUNGAL [None]
